FAERS Safety Report 6499156-9 (Version None)
Quarter: 2009Q4

REPORT INFORMATION
  Report Type: 
  Country: None (occurrence: None)
  Receive Date: 20091215
  Receipt Date: 20091207
  Transmission Date: 20100525
  Serious: Yes (Hospitalization, Other)
  Sender: FDA-Public Use
  Company Number: US-ELI_LILLY_AND_COMPANY-US200909005424

PATIENT
  Sex: Female

DRUGS (12)
  1. HUMALOG MIX 75/25 [Suspect]
     Dosage: UNK, UNK
     Dates: start: 20090101, end: 20090101
  2. HUMALOG MIX 75/25 [Suspect]
     Dosage: UNK, UNK
     Dates: start: 20090101, end: 20090101
  3. HUMULIN N [Suspect]
     Dates: start: 20080801
  4. LASIX [Concomitant]
     Dosage: 40 MG, UNK
  5. LISINOPRIL [Concomitant]
     Dosage: 15 MG, UNK
  6. MICRO-K [Concomitant]
  7. ATENOLOL [Concomitant]
     Dosage: 25 MG, UNK
  8. SYNTHROID [Concomitant]
     Dosage: 100 MG, UNK
  9. PAXIL [Concomitant]
     Dosage: 20 MG, UNK
  10. DYAZIDE [Concomitant]
  11. ZOCOR [Concomitant]
     Dosage: 40 MG, UNK
  12. NOVOLIN R [Concomitant]
     Dosage: UNK, AS NEEDED

REACTIONS (7)
  - BLOOD GLUCOSE DECREASED [None]
  - BLOOD GLUCOSE INCREASED [None]
  - INTERVERTEBRAL DISC PROTRUSION [None]
  - PNEUMONIA [None]
  - SPINAL COLUMN STENOSIS [None]
  - SPINAL OSTEOARTHRITIS [None]
  - UNEQUAL LIMB LENGTH [None]
